FAERS Safety Report 16403891 (Version 5)
Quarter: 2019Q3

REPORT INFORMATION
  Report Type: Spontaneous
  Country: US (occurrence: US)
  Receive Date: 20190607
  Receipt Date: 20190930
  Transmission Date: 20191004
  Serious: Yes (Hospitalization, Other)
  Sender: FDA-Public Use
  Company Number: US-CATALYST PHARMACEUTICALS, INC-2019CAT00057

PATIENT
  Age: 76 Year
  Sex: Female
  Weight: 60.77 kg

DRUGS (25)
  1. PRAMIPEXOLE. [Concomitant]
     Active Substance: PRAMIPEXOLE
     Dosage: 4 TO 5 A DAY
  2. PAROXETINE. [Concomitant]
     Active Substance: PAROXETINE
     Dosage: 40 MG, 1X/DAY
  3. UNSPECIFIED MEDICATION FOR RESTLESS LEGS [Concomitant]
     Dosage: UNK
     Dates: start: 2019
  4. PAXIL [Concomitant]
     Active Substance: PAROXETINE HYDROCHLORIDE
  5. XANAX [Concomitant]
     Active Substance: ALPRAZOLAM
  6. FIRDAPSE [Suspect]
     Active Substance: AMIFAMPRIDINE
     Indication: MYASTHENIC SYNDROME
     Dosage: 10 MG, 2X/DAY
     Route: 048
     Dates: start: 20190308, end: 2019
  7. GABAPENTIN. [Concomitant]
     Active Substance: GABAPENTIN
  8. FIRDAPSE [Suspect]
     Active Substance: AMIFAMPRIDINE
     Dosage: 25 MG, 2X/DAY
     Route: 048
     Dates: start: 2019, end: 2019
  9. FIRDAPSE [Suspect]
     Active Substance: AMIFAMPRIDINE
     Dosage: 10 MG, 1X/DAY IN THE AFTERNOON
     Route: 048
     Dates: start: 2019, end: 2019
  10. FIRDAPSE [Suspect]
     Active Substance: AMIFAMPRIDINE
     Dosage: 10 MG, 1X/DAY
     Route: 048
     Dates: start: 2019
  11. CYCLOBENZAPRINE. [Suspect]
     Active Substance: CYCLOBENZAPRINE
     Indication: NECK PAIN
     Dosage: UNK
  12. LOSARTAN. [Concomitant]
     Active Substance: LOSARTAN
     Indication: HYPERTENSION
     Dosage: 100 MG, 1X/DAY
  13. LEVOTHYROXINE. [Concomitant]
     Active Substance: LEVOTHYROXINE
     Dosage: 150 ?G, 1X/DAY
  14. ^FOLIZANE^ [Concomitant]
  15. PREDNISONE. [Suspect]
     Active Substance: PREDNISONE
     Dosage: 10 MG, 1X/DAY
  16. IVIG (INTRAVENOUS IMUNOGLOBULIN) [Suspect]
     Active Substance: HUMAN IMMUNOGLOBULIN G
     Route: 042
  17. PRAMIPEXOLE. [Concomitant]
     Active Substance: PRAMIPEXOLE
     Dosage: SUPPOSED TO TAKE 3 A DAY, BUT NORMALLY TAKES 1-2 PER DAY
  18. FIORICET [Concomitant]
     Active Substance: ACETAMINOPHEN\BUTALBITAL\CAFFEINE
     Indication: MIGRAINE
     Dosage: UNK, AS NEEDED
  19. MELATONIN [Concomitant]
     Active Substance: MELATONIN
     Dosage: 9 MG, 1X/DAY BEFORE BEDTIME
  20. OMEPRAZOLE. [Concomitant]
     Active Substance: OMEPRAZOLE
  21. FIRDAPSE [Suspect]
     Active Substance: AMIFAMPRIDINE
     Dosage: 15 MG, 1X/DAY IN THE MORNING
     Route: 048
     Dates: start: 2019, end: 2019
  22. LORATADINE. [Concomitant]
     Active Substance: LORATADINE
     Dosage: 10 MG
  23. VESICARE [Concomitant]
     Active Substance: SOLIFENACIN SUCCINATE
  24. FIRDAPSE [Suspect]
     Active Substance: AMIFAMPRIDINE
     Dosage: 15 MG, 1X/DAY
     Route: 048
     Dates: start: 2019
  25. UNSPECIFIED MEDICATION FOR RESTLESS LEGS [Concomitant]
     Dosage: UNK
     Dates: end: 2019

REACTIONS (25)
  - Visual impairment [Not Recovered/Not Resolved]
  - Wound [Recovering/Resolving]
  - Torticollis [Not Recovered/Not Resolved]
  - Gastric ulcer haemorrhage [Recovering/Resolving]
  - Muscle twitching [Not Recovered/Not Resolved]
  - Eye movement disorder [Not Recovered/Not Resolved]
  - Drug ineffective [Recovering/Resolving]
  - Restless legs syndrome [Not Recovered/Not Resolved]
  - Migraine [Not Recovered/Not Resolved]
  - Wound haemorrhage [Recovering/Resolving]
  - Dyspnoea [Not Recovered/Not Resolved]
  - Limb discomfort [Unknown]
  - Musculoskeletal pain [Not Recovered/Not Resolved]
  - Chest pain [Recovered/Resolved]
  - Vision blurred [Not Recovered/Not Resolved]
  - Back pain [Not Recovered/Not Resolved]
  - Insomnia [Recovering/Resolving]
  - Wound infection [Not Recovered/Not Resolved]
  - Motor dysfunction [Not Recovered/Not Resolved]
  - Arthralgia [Recovered/Resolved]
  - Diplopia [Not Recovered/Not Resolved]
  - Cellulitis [Recovering/Resolving]
  - Neck pain [Not Recovered/Not Resolved]
  - Fall [Unknown]
  - Feeling abnormal [Unknown]

NARRATIVE: CASE EVENT DATE: 2019
